FAERS Safety Report 4600983-0 (Version None)
Quarter: 2005Q1

REPORT INFORMATION
  Report Type: 
  Country: None (occurrence: None)
  Receive Date: 20050307
  Receipt Date: 20050307
  Transmission Date: 20050727
  Serious: No
  Sender: FDA-Public Use
  Company Number: None

PATIENT
  Age: 79 Year
  Sex: Male
  Weight: 99 kg

DRUGS (4)
  1. CLOPIDOGREL ORAL TAB [Suspect]
     Indication: PERIPHERAL VASCULAR DISORDER
     Dosage: 75 MG DAILY
     Dates: start: 20000520
  2. TRAMADOL HCL [Concomitant]
  3. SIMVASTATIN [Concomitant]
  4. TERAZOSIN [Concomitant]

REACTIONS (2)
  - OROPHARYNGEAL SWELLING [None]
  - SWELLING FACE [None]
